FAERS Safety Report 20230283 (Version 1)
Quarter: 2021Q4

REPORT INFORMATION
  Report Type: Spontaneous
  Country: FR (occurrence: FR)
  Receive Date: 20211226
  Receipt Date: 20211226
  Transmission Date: 20220303
  Serious: Yes (Other)
  Sender: FDA-Public Use
  Company Number: FR-VALIDUS PHARMACEUTICALS LLC-FR-VDP-2021-014778

PATIENT

DRUGS (6)
  1. FUROSEMIDE [Suspect]
     Active Substance: FUROSEMIDE
     Indication: Hypertension
     Dosage: UNK
     Route: 042
     Dates: start: 20211010
  2. FUROSEMIDE [Suspect]
     Active Substance: FUROSEMIDE
     Dosage: UNK
     Route: 042
     Dates: start: 20210918, end: 20210923
  3. CIPROFLOXACIN [Suspect]
     Active Substance: CIPROFLOXACIN
     Indication: Lung disorder
     Dosage: 400 MG,(2X/J IV NOS)
     Route: 042
     Dates: start: 20211007
  4. BETAMETHASONE [Suspect]
     Active Substance: BETAMETHASONE
     Indication: Lung disorder
     Dosage: 4 MG, QD
     Route: 065
     Dates: start: 20210929
  5. PIPERACILLIN SODIUM\TAZOBACTAM SODIUM [Suspect]
     Active Substance: PIPERACILLIN SODIUM\TAZOBACTAM SODIUM
     Indication: Lung disorder
     Dosage: 4 G, QID (POWDER AND SOLVENT FOR SOLUTION FOR INFUSION)
     Route: 042
     Dates: start: 20210925, end: 20211002
  6. PIPERACILLIN SODIUM\TAZOBACTAM SODIUM [Suspect]
     Active Substance: PIPERACILLIN SODIUM\TAZOBACTAM SODIUM
     Dosage: 4 G, QID  (POWDER AND SOLVENT FOR SOLUTION FOR INFUSION)
     Route: 042
     Dates: start: 20211008

REACTIONS (1)
  - Rash maculo-papular [Not Recovered/Not Resolved]

NARRATIVE: CASE EVENT DATE: 20211013
